FAERS Safety Report 12774890 (Version 1)
Quarter: 2016Q3

REPORT INFORMATION
  Report Type: Spontaneous
  Country: US (occurrence: US)
  Receive Date: 20160923
  Receipt Date: 20160923
  Transmission Date: 20161109
  Serious: Yes (Other)
  Sender: FDA-Public Use
  Company Number: None

PATIENT
  Sex: Female
  Weight: 87.54 kg

DRUGS (2)
  1. H.P. ACTHAR [Suspect]
     Active Substance: CORTICOTROPIN
     Indication: RHEUMATOID ARTHRITIS
     Dosage: 80 UNITS 2 X WEEKLY
     Route: 058
     Dates: start: 201512, end: 201609
  2. H.P. ACTHAR [Suspect]
     Active Substance: CORTICOTROPIN
     Indication: SENILE OSTEOPOROSIS
     Dosage: 80 UNITS 2 X WEEKLY
     Route: 058
     Dates: start: 201512, end: 201609

REACTIONS (1)
  - Unevaluable event [None]
